FAERS Safety Report 11780146 (Version 1)
Quarter: 2015Q4

REPORT INFORMATION
  Report Type: Spontaneous
  Country: US (occurrence: US)
  Receive Date: 20151126
  Receipt Date: 20151126
  Transmission Date: 20160305
  Serious: No
  Sender: FDA-Public Use
  Company Number: US-JNJFOC-20151103661

PATIENT
  Age: 50 Year
  Sex: Male
  Weight: 108.86 kg

DRUGS (7)
  1. TYLENOL EXTRA STRENGTH [Suspect]
     Active Substance: ACETAMINOPHEN
     Indication: BACK PAIN
     Dosage: 650-975MG (2-3 CAPLETS, VARIES- AS NEEDED)
     Route: 048
  2. LISINOPRIL. [Concomitant]
     Active Substance: LISINOPRIL
     Indication: PRODUCT USED FOR UNKNOWN INDICATION
     Route: 065
  3. VITAMIN C [Concomitant]
     Active Substance: ASCORBIC ACID
     Indication: VITAMIN SUPPLEMENTATION
     Route: 065
  4. MOTRIN IB [Suspect]
     Active Substance: IBUPROFEN
     Indication: ARTHRITIS
     Dosage: 2-3 CAPLETS, VARIES AS NEEDED
     Route: 048
  5. MOTRIN IB [Suspect]
     Active Substance: IBUPROFEN
     Indication: BACK PAIN
     Dosage: 2-3 CAPLETS, VARIES AS NEEDED
     Route: 048
  6. METFORMIN [Concomitant]
     Active Substance: METFORMIN HYDROCHLORIDE
     Indication: PRODUCT USED FOR UNKNOWN INDICATION
     Route: 065
  7. TYLENOL EXTRA STRENGTH [Suspect]
     Active Substance: ACETAMINOPHEN
     Indication: ARTHRITIS
     Dosage: 650-975MG (2-3 CAPLETS, VARIES- AS NEEDED)
     Route: 048

REACTIONS (4)
  - Wrong technique in product usage process [Unknown]
  - Drug ineffective [Unknown]
  - Contraindicated drug administered [Unknown]
  - Incorrect dose administered [Unknown]
